FAERS Safety Report 6692829-4 (Version None)
Quarter: 2010Q2

REPORT INFORMATION
  Report Type: 
  Country: None (occurrence: None)
  Receive Date: 20100422
  Receipt Date: 20100412
  Transmission Date: 20101027
  Serious: Yes (Disabling)
  Sender: FDA-Public Use
  Company Number: US-CELGENEUS-163-21880-10021075

PATIENT
  Sex: Female

DRUGS (1)
  1. REVLIMID [Suspect]
     Indication: MYELODYSPLASTIC SYNDROME
     Route: 048
     Dates: start: 20100112, end: 20100218

REACTIONS (5)
  - CONFUSIONAL STATE [None]
  - DECREASED APPETITE [None]
  - DEMENTIA [None]
  - DRUG INTOLERANCE [None]
  - FALL [None]
